FAERS Safety Report 15263764 (Version 1)
Quarter: 2018Q3

REPORT INFORMATION
  Report Type: Spontaneous
  Country: US (occurrence: US)
  Receive Date: 20180810
  Receipt Date: 20180810
  Transmission Date: 20181010
  Serious: Yes (Other)
  Sender: FDA-Public Use
  Company Number: US-TEVA-2018-US-938721

PATIENT
  Age: 84 Year
  Sex: Female
  Weight: 86.2 kg

DRUGS (4)
  1. HYDROCHLOROTHIAZIDE. [Suspect]
     Active Substance: HYDROCHLOROTHIAZIDE
     Dosage: 24 MILLIGRAM DAILY;
     Route: 065
     Dates: start: 20180613, end: 20180613
  2. METHYLPREDNISOLONE. [Suspect]
     Active Substance: METHYLPREDNISOLONE
     Indication: GOUT
     Dosage: FOR SIX CONSECUTIVE DAYS (FIRST DAY PATIENT TOOK 12 MG IN THE LATE EVENING AND 12 MG BEFORE BED TIME
     Route: 048
     Dates: start: 20180614, end: 20180618
  3. CAPTOPRIL. [Concomitant]
     Active Substance: CAPTOPRIL
     Indication: HYPERTENSION
     Dosage: 100 MILLIGRAM DAILY;
     Route: 065
  4. HYDROCHLOROTHIAZIDE. [Suspect]
     Active Substance: HYDROCHLOROTHIAZIDE
     Dosage: 25 MILLIGRAM DAILY; IN THE MORNING
     Route: 065
     Dates: start: 20180617, end: 20180618

REACTIONS (9)
  - Presyncope [Unknown]
  - Haematochezia [Unknown]
  - Fatigue [Not Recovered/Not Resolved]
  - Malaise [Unknown]
  - Faeces discoloured [Not Recovered/Not Resolved]
  - Tinnitus [Not Recovered/Not Resolved]
  - Dehydration [Recovering/Resolving]
  - Feeling abnormal [Unknown]
  - Arthralgia [Not Recovered/Not Resolved]

NARRATIVE: CASE EVENT DATE: 20180618
